FAERS Safety Report 4844239-X (Version None)
Quarter: 2005Q4

REPORT INFORMATION
  Report Type: 
  Country: None (occurrence: None)
  Receive Date: 20051202
  Receipt Date: 20051123
  Transmission Date: 20060501
  Serious: Yes (Hospitalization)
  Sender: FDA-Public Use
  Company Number: FR-AVENTIS-200513878FR

PATIENT
  Age: 70 Year
  Sex: Female
  Weight: 57 kg

DRUGS (4)
  1. AMAREL [Suspect]
     Route: 048
     Dates: start: 20050825, end: 20050912
  2. NOROXIN [Suspect]
     Route: 048
     Dates: start: 20050905, end: 20050912
  3. LAMISIL [Suspect]
     Route: 048
     Dates: start: 20050615, end: 20050912
  4. VISIPAQUE [Suspect]
     Route: 042
     Dates: start: 20050909, end: 20050909

REACTIONS (1)
  - NEPHRITIS INTERSTITIAL [None]
